FAERS Safety Report 16470524 (Version 1)
Quarter: 2019Q2

REPORT INFORMATION
  Report Type: Spontaneous
  Country: US (occurrence: US)
  Receive Date: 20190624
  Receipt Date: 20190624
  Transmission Date: 20190711
  Serious: Yes (Hospitalization, Other)
  Sender: FDA-Public Use
  Company Number: US-ARRAY-2019-05426

PATIENT

DRUGS (2)
  1. MEKTOVI [Suspect]
     Active Substance: BINIMETINIB
     Indication: ADDISON^S DISEASE
     Dosage: 45 MG, BID
     Route: 048
     Dates: start: 20181030
  2. BRAFTOVI [Suspect]
     Active Substance: ENCORAFENIB
     Indication: ADDISON^S DISEASE
     Dosage: 450 MG, QD
     Route: 048
     Dates: start: 20181030

REACTIONS (2)
  - Product use in unapproved indication [Unknown]
  - Disease progression [Unknown]

NARRATIVE: CASE EVENT DATE: 20181030
